FAERS Safety Report 8907124 (Version 1)
Quarter: 2012Q4

REPORT INFORMATION
  Report Type: 
  Country: US (occurrence: US)
  Receive Date: 20121114
  Receipt Date: 20121114
  Transmission Date: 20130627
  Serious: Yes (Other)
  Sender: FDA-Public Use
  Company Number: US-BAYER-2012-117411

PATIENT
  Sex: Female

DRUGS (2)
  1. YAZ [Suspect]
  2. PARAGARD [Suspect]
     Dosage: UNK
     Dates: end: 20121025

REACTIONS (4)
  - Abdominal pain lower [Not Recovered/Not Resolved]
  - Vaginal haemorrhage [Not Recovered/Not Resolved]
  - Post procedural haemorrhage [Not Recovered/Not Resolved]
  - Off label use [None]
